FAERS Safety Report 6087438-4 (Version None)
Quarter: 2009Q1

REPORT INFORMATION
  Report Type: 
  Country: None (occurrence: None)
  Receive Date: 20090223
  Receipt Date: 20090217
  Transmission Date: 20090719
  Serious: Yes (Hospitalization)
  Sender: FDA-Public Use
  Company Number: JP-MERCK-0902USA03474

PATIENT
  Age: 68 Year
  Sex: Male

DRUGS (4)
  1. COZAAR [Suspect]
     Route: 048
     Dates: start: 20081001
  2. AMARYL [Concomitant]
     Route: 048
  3. BASEN [Concomitant]
     Route: 048
  4. ACTOS [Concomitant]
     Route: 048

REACTIONS (2)
  - BLOOD GLUCOSE DECREASED [None]
  - LOSS OF CONSCIOUSNESS [None]
